FAERS Safety Report 13794841 (Version 1)
Quarter: 2017Q3

REPORT INFORMATION
  Report Type: Spontaneous
  Country: GB (occurrence: GB)
  Receive Date: 20170726
  Receipt Date: 20170726
  Transmission Date: 20171127
  Serious: Yes (Other)
  Sender: FDA-Public Use
  Company Number: GB-PFIZER INC-1932852

PATIENT
  Age: 45 Year
  Sex: Male
  Weight: 69.85 kg

DRUGS (1)
  1. METHOTREXATE SODIUM. [Suspect]
     Active Substance: METHOTREXATE SODIUM
     Indication: PSORIASIS
     Dosage: 12.5 MG, FREQ: 1 WEEK; INTERVAL: 1
     Route: 048
     Dates: start: 20130201, end: 20130901

REACTIONS (5)
  - Depressed mood [Recovered/Resolved]
  - Suicidal ideation [Recovered/Resolved]
  - Dizziness [Unknown]
  - Fatigue [Unknown]
  - Personality change [Unknown]

NARRATIVE: CASE EVENT DATE: 20130201
